FAERS Safety Report 7796766-3 (Version None)
Quarter: 2011Q4

REPORT INFORMATION
  Report Type: 
  Country: None (occurrence: None)
  Receive Date: 20111005
  Receipt Date: 20110926
  Transmission Date: 20120403
  Serious: Yes (Other)
  Sender: FDA-Public Use
  Company Number: US-JNJFOC-20110911763

PATIENT
  Sex: Female
  Weight: 45.36 kg

DRUGS (9)
  1. FENTANYL-100 [Suspect]
     Dosage: 100 UG/HR + 25 UG/HR
     Route: 062
     Dates: start: 20110901
  2. FENTANYL-100 [Suspect]
     Indication: BACK PAIN
     Dosage: 100 UG/HR + 25 UG/HR
     Route: 062
     Dates: end: 20110801
  3. FENTANYL CITRATE [Suspect]
     Indication: BACK PAIN
     Dosage: 100 UG/HR + 25 UG/HR
     Route: 062
     Dates: start: 20110801, end: 20110901
  4. FENTANYL-100 [Suspect]
     Dosage: 100 UG/HR + 25 UG/HR
     Route: 062
     Dates: end: 20110801
  5. FENTANYL-100 [Suspect]
     Dosage: 100 UG/HR + 25 UG/HR
     Route: 062
     Dates: start: 20110901
  6. FENTANYL-100 [Suspect]
     Indication: INTERVERTEBRAL DISC DEGENERATION
     Dosage: 100 UG/HR + 25 UG/HR
     Route: 062
     Dates: start: 20110901
  7. FENTANYL-100 [Suspect]
     Indication: INTERVERTEBRAL DISC PROTRUSION
     Dosage: 100 UG/HR + 25 UG/HR
     Route: 062
     Dates: end: 20110801
  8. FENTANYL CITRATE [Suspect]
     Indication: INTERVERTEBRAL DISC DEGENERATION
     Dosage: 100 UG/HR + 25 UG/HR
     Route: 062
     Dates: start: 20110801, end: 20110901
  9. FENTANYL CITRATE [Suspect]
     Indication: INTERVERTEBRAL DISC PROTRUSION
     Dosage: 100 UG/HR + 25 UG/HR
     Route: 062
     Dates: start: 20110801, end: 20110901

REACTIONS (6)
  - ABNORMAL WEIGHT GAIN [None]
  - BODY HEIGHT DECREASED [None]
  - PRODUCT QUALITY ISSUE [None]
  - APPLICATION SITE DISCHARGE [None]
  - ABDOMINAL PAIN UPPER [None]
  - APPLICATION SITE REACTION [None]
